FAERS Safety Report 19587676 (Version 2)
Quarter: 2021Q3

REPORT INFORMATION
  Report Type: Other
  Country: DE (occurrence: DE)
  Receive Date: 20210721
  Receipt Date: 20210801
  Transmission Date: 20211014
  Serious: Yes (Hospitalization, Other)
  Sender: FDA-Public Use
  Company Number: DE-DEXPHARM-20211153

PATIENT
  Age: 64 Year
  Sex: Female

DRUGS (2)
  1. CHOLESTYRAMINE?BOUND DICLOFENAC [Suspect]
     Active Substance: CHOLESTYRAMINE\DICLOFENAC
  2. LEFLUNOMIDE. [Suspect]
     Active Substance: LEFLUNOMIDE

REACTIONS (1)
  - Intestinal diaphragm disease [Unknown]
